FAERS Safety Report 13670058 (Version 2)
Quarter: 2017Q3

REPORT INFORMATION
  Report Type: Spontaneous
  Country: US (occurrence: US)
  Receive Date: 20170620
  Receipt Date: 20170816
  Transmission Date: 20171127
  Serious: No
  Sender: FDA-Public Use
  Company Number: US-AMGEN-USASP2017091530

PATIENT
  Sex: Female

DRUGS (1)
  1. ENBREL [Suspect]
     Active Substance: ETANERCEPT
     Indication: PRODUCT USED FOR UNKNOWN INDICATION
     Dosage: UNK
     Route: 065

REACTIONS (6)
  - Drug specific antibody present [Unknown]
  - Feeling abnormal [Unknown]
  - Influenza like illness [Not Recovered/Not Resolved]
  - Condition aggravated [Not Recovered/Not Resolved]
  - Joint swelling [Not Recovered/Not Resolved]
  - Dyspnoea [Not Recovered/Not Resolved]
